FAERS Safety Report 4274368-3 (Version None)
Quarter: 2004Q1

REPORT INFORMATION
  Report Type: 
  Country: None (occurrence: None)
  Receive Date: 20040120
  Receipt Date: 20030821
  Transmission Date: 20041129
  Serious: Yes (Hospitalization)
  Sender: FDA-Public Use
  Company Number: WAES 0308DEU00125

PATIENT
  Age: 33 Year
  Sex: Female
  Weight: 67 kg

DRUGS (6)
  1. ALBUTEROL SULFATE [Concomitant]
     Indication: ASTHMA
     Route: 055
  2. FLUTICASONE PROPIONATE AND SALMETEROL XINAFOATE [Concomitant]
     Indication: ASTHMA
     Route: 055
     Dates: start: 20020801
  3. SINGULAIR [Suspect]
     Indication: ASTHMA
     Route: 048
     Dates: start: 20030130, end: 20030301
  4. SINGULAIR [Suspect]
     Route: 048
     Dates: start: 20030401, end: 20030526
  5. PREDNISOLONE [Concomitant]
     Route: 048
     Dates: start: 20020101, end: 20030401
  6. THEOPHYLLINE [Concomitant]
     Indication: ASTHMA
     Route: 048

REACTIONS (9)
  - ALLERGIC GRANULOMATOUS ANGIITIS [None]
  - ASTHMA [None]
  - CHEST X-RAY ABNORMAL [None]
  - EMPHYSEMA [None]
  - HYPERTHYROIDISM [None]
  - INFECTION [None]
  - LUNG INFILTRATION [None]
  - THYROID CYST [None]
  - THYROID NEOPLASM [None]
